FAERS Safety Report 20022283 (Version 1)
Quarter: 2021Q4

REPORT INFORMATION
  Report Type: Spontaneous
  Country: US (occurrence: US)
  Receive Date: 20211102
  Receipt Date: 20211102
  Transmission Date: 20220304
  Serious: Yes (Other)
  Sender: FDA-Public Use
  Company Number: US-NOVARTISPH-NVSC2021US242554

PATIENT
  Sex: Male

DRUGS (11)
  1. DOCETAXEL [Suspect]
     Active Substance: DOCETAXEL
     Indication: Prostate cancer metastatic
     Dosage: UNK (CHEMOTHERAPY 1 DAY 1)
     Route: 065
     Dates: start: 20210112
  2. DOCETAXEL [Suspect]
     Active Substance: DOCETAXEL
     Dosage: UNK (CHEMOTHERAPY 2 DAY 1)
     Route: 065
     Dates: start: 20210202
  3. DOCETAXEL [Suspect]
     Active Substance: DOCETAXEL
     Dosage: UNK (CHEMOTHERAPY 3 DAY 1)
     Route: 065
     Dates: start: 20210223
  4. DOCETAXEL [Suspect]
     Active Substance: DOCETAXEL
     Dosage: UNK (CHEMOTHERAPY 4 DAY 1)
     Route: 065
     Dates: start: 20210316
  5. DOCETAXEL [Suspect]
     Active Substance: DOCETAXEL
     Dosage: UNK (CHEMOTHERAPY 5 DAY 1)
     Route: 065
     Dates: start: 20210406
  6. DOCETAXEL [Suspect]
     Active Substance: DOCETAXEL
     Dosage: UNK (CHEMOTHERAPY 6 DAY 1)
     Route: 065
     Dates: start: 20210427
  7. DOCETAXEL [Suspect]
     Active Substance: DOCETAXEL
     Dosage: UNK (CHEMOTHERAPY 7 DAY 1)
     Route: 065
     Dates: start: 20210518
  8. DOCETAXEL [Suspect]
     Active Substance: DOCETAXEL
     Dosage: UNK (CHEMOTHERAPY 8 DAY 1)
     Route: 065
     Dates: start: 20210608
  9. DOCETAXEL [Suspect]
     Active Substance: DOCETAXEL
     Dosage: UNK (CHEMOTHERAPY 9 DAY 1)
     Route: 065
     Dates: start: 20210629, end: 20210629
  10. LUPRON [Concomitant]
     Active Substance: LEUPROLIDE ACETATE
     Indication: Product used for unknown indication
     Dosage: UNK
     Route: 065
     Dates: start: 20210201, end: 20210913
  11. ZOMETA [Concomitant]
     Active Substance: ZOLEDRONIC ACID
     Indication: Product used for unknown indication
     Dosage: UNK
     Route: 065

REACTIONS (5)
  - Haematochezia [Unknown]
  - Prostate cancer metastatic [Unknown]
  - Malignant neoplasm progression [Unknown]
  - Bone pain [Unknown]
  - Abdominal pain [Unknown]

NARRATIVE: CASE EVENT DATE: 20210819
